FAERS Safety Report 4620206-6 (Version None)
Quarter: 2005Q1

REPORT INFORMATION
  Report Type: 
  Country: None (occurrence: None)
  Receive Date: 20050321
  Receipt Date: 20050321
  Transmission Date: 20050727
  Serious: Yes (Hospitalization)
  Sender: FDA-Public Use
  Company Number: None

PATIENT
  Age: 55 Year
  Sex: Male

DRUGS (4)
  1. PEGINTERFERON 2A [Suspect]
     Dates: start: 20041001, end: 20041001
  2. OLAZEPINE [Concomitant]
  3. NEFAZODONE HCL [Concomitant]
  4. CLONAZEPAM [Concomitant]

REACTIONS (3)
  - CONFUSIONAL STATE [None]
  - PSYCHOTIC DISORDER [None]
  - TOXICOLOGIC TEST ABNORMAL [None]
